FAERS Safety Report 15146691 (Version 1)
Quarter: 2018Q3

REPORT INFORMATION
  Report Type: Spontaneous
  Country: DK (occurrence: DK)
  Receive Date: 20180716
  Receipt Date: 20180716
  Transmission Date: 20181010
  Serious: Yes (Life-Threatening)
  Sender: FDA-Public Use
  Company Number: DK-CONCORDIA PHARMACEUTICALS INC.-E2B_00013809

PATIENT
  Age: 64 Year
  Sex: Female
  Weight: 57 kg

DRUGS (2)
  1. LONQUEX [Suspect]
     Active Substance: LIPEGFILGRASTIM
     Indication: FEBRILE NEUTROPENIA
     Dosage: DOSIS: 6 MG S.C. CA. 24 TIMER EFTER HVER CYTOTO, STYRKE: 6 MG
     Route: 058
     Dates: start: 20180409, end: 20180409
  2. PREDNISOLONE. [Suspect]
     Active Substance: PREDNISOLONE
     Indication: ADVERSE DRUG REACTION
     Route: 048
     Dates: start: 20180408, end: 20180410

REACTIONS (2)
  - White blood cell count increased [Recovering/Resolving]
  - Differential white blood cell count abnormal [Recovering/Resolving]

NARRATIVE: CASE EVENT DATE: 20180416
